FAERS Safety Report 21885054 (Version 1)
Quarter: 2023Q1

REPORT INFORMATION
  Report Type: Spontaneous
  Country: US (occurrence: None)
  Receive Date: 20230118
  Receipt Date: 20230118
  Transmission Date: 20230418
  Serious: No
  Sender: FDA-Public Use
  Company Number: None

PATIENT
  Age: 75 Year
  Sex: Male
  Weight: 88.45 kg

DRUGS (2)
  1. TRIAMTERENE-HYDROCHLOROTHIAZIDE [Suspect]
     Active Substance: TRIAMTERENE-HYDROCHLOROTHIAZIDE
     Indication: Hypertension
     Dosage: OTHER QUANTITY : ONE-HALF TAB;?FREQUENCY : DAILY;?
     Route: 048
     Dates: start: 20090428, end: 20221017
  2. ATENOLOL [Suspect]
     Active Substance: ATENOLOL
     Indication: Hypertension
     Dosage: FREQUENCY : DAILY;?
     Route: 048
     Dates: start: 20090428, end: 20221017

REACTIONS (3)
  - Hyponatraemia [None]
  - Heart rate decreased [None]
  - Blood pressure systolic increased [None]

NARRATIVE: CASE EVENT DATE: 20221016
